FAERS Safety Report 14811363 (Version 1)
Quarter: 2018Q2

REPORT INFORMATION
  Report Type: Report from Study
  Country: US (occurrence: US)
  Receive Date: 20180425
  Receipt Date: 20180425
  Transmission Date: 20180711
  Serious: No
  Sender: FDA-Public Use
  Company Number: US-AMGEN-USASL2018033188

PATIENT
  Age: 78 Year
  Sex: Female

DRUGS (3)
  1. ZETIA [Concomitant]
     Active Substance: EZETIMIBE
     Dosage: 10 MG, QD
  2. REPATHA [Suspect]
     Active Substance: EVOLOCUMAB
     Indication: HYPERCHOLESTEROLAEMIA
     Dosage: 140 MG/ML, Q2WK
     Route: 058
     Dates: start: 20170620, end: 201802
  3. REPATHA [Suspect]
     Active Substance: EVOLOCUMAB
     Dosage: 140 MG/ML, Q2WK
     Route: 058
     Dates: start: 20180308, end: 20180308

REACTIONS (8)
  - Muscle spasms [Recovered/Resolved]
  - Injection site erythema [Recovered/Resolved]
  - Dysstasia [Recovering/Resolving]
  - Back pain [Recovering/Resolving]
  - Nasopharyngitis [Recovering/Resolving]
  - Gait disturbance [Recovering/Resolving]
  - Injection site bruising [Recovered/Resolved]
  - Myalgia [Recovered/Resolved]

NARRATIVE: CASE EVENT DATE: 20180308
